FAERS Safety Report 7955174-2 (Version None)
Quarter: 2011Q4

REPORT INFORMATION
  Report Type: 
  Country: None (occurrence: None)
  Receive Date: 20111202
  Receipt Date: 20111122
  Transmission Date: 20120403
  Serious: Yes (Hospitalization)
  Sender: FDA-Public Use
  Company Number: PHHY2011FR103573

PATIENT
  Sex: Male

DRUGS (7)
  1. LERCANIDIPINE [Concomitant]
  2. PLAVIX [Concomitant]
     Dosage: 75 MG, QD
  3. VALSARTAN [Suspect]
  4. ALLOPURINOL [Concomitant]
     Dosage: 200 MG, QD
  5. VALSARTAN  AND HYDROCHLOROTHIAZIDE [Concomitant]
     Dates: end: 20110301
  6. CALCIUM-SANDOZ [Suspect]
     Route: 048
     Dates: start: 20110301
  7. CRESTOR [Concomitant]
     Dosage: 10 MG, QD

REACTIONS (3)
  - RENAL FAILURE ACUTE [None]
  - CONFUSIONAL STATE [None]
  - HYPERCALCAEMIA [None]
